FAERS Safety Report 6246529-5 (Version None)
Quarter: 2009Q2

REPORT INFORMATION
  Report Type: 
  Country: None (occurrence: None)
  Receive Date: 20090624
  Receipt Date: 20090624
  Transmission Date: 20091009
  Serious: Yes (Hospitalization)
  Sender: FDA-Public Use
  Company Number: None

PATIENT
  Age: 48 Year
  Sex: Male
  Weight: 144 kg

DRUGS (7)
  1. ASPIRIN [Suspect]
     Dosage: 325 DAILY PO
     Route: 048
  2. ALEVE [Suspect]
  3. AMLODIPINE [Concomitant]
  4. AVALID [Concomitant]
  5. INSULIN [Concomitant]
  6. TEKTURNA [Concomitant]
  7. ZOCOR [Concomitant]

REACTIONS (7)
  - ASTHENIA [None]
  - DIVERTICULUM INTESTINAL HAEMORRHAGIC [None]
  - DIZZINESS [None]
  - HAEMATEMESIS [None]
  - HAEMATOCHEZIA [None]
  - HAEMATOCRIT DECREASED [None]
  - HAEMOGLOBIN DECREASED [None]
